FAERS Safety Report 21722148 (Version 9)
Quarter: 2023Q1

REPORT INFORMATION
  Report Type: Spontaneous
  Country: JP (occurrence: JP)
  Receive Date: 20221213
  Receipt Date: 20230310
  Transmission Date: 20230417
  Serious: Yes (Other)
  Sender: FDA-Public Use
  Company Number: JP-OTSUKA-2022_054293

PATIENT
  Age: 57 Year
  Sex: Male

DRUGS (10)
  1. REXULTI [Suspect]
     Active Substance: BREXPIPRAZOLE
     Indication: Schizophrenia
     Dosage: 1 MG (IN THE AFTERNOON)
     Route: 048
  2. REXULTI [Suspect]
     Active Substance: BREXPIPRAZOLE
     Dosage: 1 MG 1 TABLET ONCE A DAY EVERY MORNING
     Route: 048
  3. REXULTI [Suspect]
     Active Substance: BREXPIPRAZOLE
     Dosage: TWO TABLETS OF 1 MG
     Route: 048
     Dates: start: 20221206
  4. REXULTI [Suspect]
     Active Substance: BREXPIPRAZOLE
     Dosage: EVERY OTHER DAY
     Route: 048
  5. REXULTI [Suspect]
     Active Substance: BREXPIPRAZOLE
     Dosage: INCREASED TO 2 TO 3 MG
     Route: 065
  6. REXULTI [Suspect]
     Active Substance: BREXPIPRAZOLE
     Dosage: 4MG, UNK
     Route: 048
  7. REXULTI [Suspect]
     Active Substance: BREXPIPRAZOLE
     Dosage: 1MG, QD
     Route: 048
  8. REXULTI [Suspect]
     Active Substance: BREXPIPRAZOLE
     Dosage: 1 MG ONCE DAILY, THE PATIENT ADDED 1 TABLET BEFORE BEDTIME AT NIGHT AT HIS DISCRETION
     Route: 048
  9. REXULTI [Suspect]
     Active Substance: BREXPIPRAZOLE
     Indication: Product used for unknown indication
     Dosage: UNK, EVERY OTHER DAY
     Route: 065
  10. CLONAZEPAM [Concomitant]
     Active Substance: CLONAZEPAM
     Indication: Myoclonus
     Dosage: UNK
     Route: 048

REACTIONS (16)
  - Hallucination [Recovering/Resolving]
  - Hallucination, auditory [Recovering/Resolving]
  - Paroxysmal perceptual alteration [Recovered/Resolved]
  - Psychiatric symptom [Unknown]
  - Depressive symptom [Unknown]
  - Musculoskeletal stiffness [Unknown]
  - Muscle rigidity [Not Recovered/Not Resolved]
  - Hypokinesia [Unknown]
  - Irritability [Unknown]
  - Pain [Unknown]
  - Back pain [Unknown]
  - Tremor [Unknown]
  - Product dose omission in error [Unknown]
  - Incorrect dose administered [Unknown]
  - Inappropriate schedule of product administration [Unknown]
  - Extra dose administered [Unknown]

NARRATIVE: CASE EVENT DATE: 20221206
